FAERS Safety Report 4758730-8 (Version None)
Quarter: 2005Q3

REPORT INFORMATION
  Report Type: 
  Country: None (occurrence: None)
  Receive Date: 20050829
  Receipt Date: 20050819
  Transmission Date: 20060218
  Serious: Yes (Other)
  Sender: FDA-Public Use
  Company Number: CHNY2005CH01615

PATIENT
  Age: 68 Year
  Sex: Male

DRUGS (11)
  1. TAVEGYL (NCH) (CLEMASTINE HYDROGEN FUMARATE) TABLET [Suspect]
     Indication: ANGIONEUROTIC OEDEMA
     Dosage: 1 MG, BID, ORAL
     Route: 048
     Dates: start: 20050715, end: 20050718
  2. METOPROLOL SUCCINATE [Suspect]
     Dosage: 25 MG, QD, ORAL
     Route: 048
     Dates: start: 20050601
  3. PREDNISONE [Concomitant]
  4. ENALAPRIL MALEATE [Concomitant]
  5. ASPIRIN [Concomitant]
  6. PLAVIX [Concomitant]
  7. NEXIUM [Concomitant]
  8. ATACAND [Concomitant]
  9. SIMCORA (SIMVASTATIN) [Concomitant]
  10. GLUCOPHAGE [Concomitant]
  11. AMARYL [Concomitant]

REACTIONS (1)
  - BRADYCARDIA [None]
